FAERS Safety Report 4881189-7 (Version None)
Quarter: 2006Q1

REPORT INFORMATION
  Report Type: 
  Country: None (occurrence: None)
  Receive Date: 20060111
  Receipt Date: 20060111
  Transmission Date: 20060701
  Serious: Yes (Life-Threatening, Other)
  Sender: FDA-Public Use
  Company Number: None

PATIENT
  Sex: Male
  Weight: 78 kg

DRUGS (2)
  1. ARANESP [Suspect]
     Indication: ANAEMIA
     Dosage: 60 INCR TO 100 1 X WEEK SUBCUT
     Route: 058
     Dates: start: 20050401, end: 20051201
  2. ARANESP [Suspect]
     Indication: RENAL FAILURE
     Dosage: 60 INCR TO 100 1 X WEEK SUBCUT
     Route: 058
     Dates: start: 20050401, end: 20051201

REACTIONS (2)
  - ANAEMIA [None]
  - THERAPY NON-RESPONDER [None]
